FAERS Safety Report 19211607 (Version 1)
Quarter: 2021Q2

REPORT INFORMATION
  Report Type: Spontaneous
  Country: US (occurrence: US)
  Receive Date: 20210503
  Receipt Date: 20210503
  Transmission Date: 20210717
  Serious: No
  Sender: FDA-Public Use
  Company Number: None

PATIENT
  Age: 39 Year
  Sex: Male
  Weight: 107 kg

DRUGS (1)
  1. BUPROPION (BUPROPION HCL 300MG 24HR TAB,SA) [Suspect]
     Active Substance: BUPROPION HYDROCHLORIDE
     Indication: DEPRESSION
     Dosage: ?          OTHER FREQUENCY:AM;?
     Route: 048
     Dates: start: 20200505, end: 20200730

REACTIONS (2)
  - Tachycardia [None]
  - Night sweats [None]

NARRATIVE: CASE EVENT DATE: 20200730
